FAERS Safety Report 4712718-1 (Version None)
Quarter: 2005Q3

REPORT INFORMATION
  Report Type: 
  Country: None (occurrence: None)
  Receive Date: 20050706
  Receipt Date: 20041117
  Transmission Date: 20060218
  Serious: Yes (Other)
  Sender: FDA-Public Use
  Company Number: 2004US001254

PATIENT
  Age: 51 Year
  Sex: Female
  Weight: 95.2 kg

DRUGS (8)
  1. ADENOSCAN [Suspect]
     Indication: SCAN MYOCARDIAL PERFUSION
     Dosage: 53.50 MG, TOTAL DOSE, IV NOS
     Route: 042
     Dates: start: 20040914, end: 20040914
  2. CARDIOLITE [Concomitant]
  3. PREMPRO [Concomitant]
  4. PREVACID [Concomitant]
  5. HYDROCHLOROTHIAZIDE [Concomitant]
  6. METFORMIN (METFORMIN) [Concomitant]
  7. HYDROCODONE BITARTRATE [Concomitant]
  8. INHALERS [Concomitant]

REACTIONS (1)
  - CARDIAC ARREST [None]
